FAERS Safety Report 4711101-2 (Version None)
Quarter: 2005Q3

REPORT INFORMATION
  Report Type: 
  Country: None (occurrence: None)
  Receive Date: 20050711
  Receipt Date: 20050628
  Transmission Date: 20060218
  Serious: Yes (Disabling, Other)
  Sender: FDA-Public Use
  Company Number: 200511675EU

PATIENT
  Age: 62 Year
  Sex: Male
  Weight: 102 kg

DRUGS (8)
  1. ALTACE [Suspect]
     Indication: CARDIAC DISORDER
     Route: 048
     Dates: start: 20010101, end: 20050611
  2. LASIX [Suspect]
     Indication: CARDIAC FAILURE CONGESTIVE
     Route: 048
  3. POTASSIUM CHLORIDE [Suspect]
     Indication: MINERAL SUPPLEMENTATION
     Route: 048
  4. AMIODARONE HCL [Concomitant]
  5. ACTOS [Concomitant]
  6. LEVOXYL [Concomitant]
  7. VICODIN [Concomitant]
  8. VALIUM [Concomitant]

REACTIONS (16)
  - ANGLE CLOSURE GLAUCOMA [None]
  - ARRHYTHMIA [None]
  - ASTHENIA [None]
  - DECREASED APPETITE [None]
  - DEPRESSION [None]
  - DIZZINESS [None]
  - DRUG INTERACTION [None]
  - DYSGEUSIA [None]
  - FLUID RETENTION [None]
  - HYPERHIDROSIS [None]
  - HYPOTENSION [None]
  - NAUSEA [None]
  - PARAESTHESIA [None]
  - PHOTOSENSITIVITY REACTION [None]
  - TINNITUS [None]
  - VISUAL ACUITY REDUCED [None]
